FAERS Safety Report 9360962 (Version 1)
Quarter: 2013Q2

REPORT INFORMATION
  Report Type: Spontaneous
  Country: AT (occurrence: AT)
  Receive Date: 20130621
  Receipt Date: 20130621
  Transmission Date: 20140414
  Serious: Yes (Other)
  Sender: FDA-Public Use
  Company Number: AT-PFIZER INC-2013182952

PATIENT
  Sex: Male
  Weight: 70 kg

DRUGS (7)
  1. XALKORI [Suspect]
     Indication: BRONCHIAL CARCINOMA
     Dosage: 250 MG, 2X/DAY
     Route: 048
     Dates: start: 20130425
  2. ENALAPRIL [Concomitant]
     Dosage: UNK
     Dates: start: 20130329
  3. HYDAL [Concomitant]
  4. NOVALGIN [Concomitant]
  5. CONCOR [Concomitant]
     Dosage: 7.5 MG, UNK
  6. CAL-D-VITA [Concomitant]
  7. DUROGESIC [Concomitant]

REACTIONS (1)
  - Urinary hesitation [Not Recovered/Not Resolved]
